FAERS Safety Report 13578579 (Version 2)
Quarter: 2017Q2

REPORT INFORMATION
  Report Type: Spontaneous
  Country: US (occurrence: US)
  Receive Date: 20170524
  Receipt Date: 20170630
  Transmission Date: 20170830
  Serious: No
  Sender: FDA-Public Use
  Company Number: US-SUNOVION-2016SUN002994

PATIENT

DRUGS (3)
  1. SAPHRIS [Concomitant]
     Active Substance: ASENAPINE MALEATE
     Indication: SLEEP DISORDER
     Dosage: UNK
  2. LATUDA [Suspect]
     Active Substance: LURASIDONE HYDROCHLORIDE
     Dosage: 120 UNK, UNK
     Dates: start: 20161221
  3. LATUDA [Suspect]
     Active Substance: LURASIDONE HYDROCHLORIDE
     Dosage: 80 MG, UNK
     Route: 048
     Dates: start: 20161103

REACTIONS (11)
  - Apathy [Unknown]
  - Insomnia [Not Recovered/Not Resolved]
  - Laziness [Unknown]
  - Asthenia [Unknown]
  - Nausea [Not Recovered/Not Resolved]
  - Eating disorder [Unknown]
  - Malaise [Unknown]
  - Drug ineffective [Unknown]
  - Dizziness [Unknown]
  - Abdominal pain upper [Unknown]
  - Weight increased [Unknown]

NARRATIVE: CASE EVENT DATE: 20161221
